FAERS Safety Report 8093890-5 (Version None)
Quarter: 2012Q1

REPORT INFORMATION
  Report Type: 
  Country: None (occurrence: None)
  Receive Date: 20120131
  Receipt Date: 20120124
  Transmission Date: 20120608
  Serious: Yes (Hospitalization)
  Sender: FDA-Public Use
  Company Number: US-US-EMD SERONO, INC.-7105802

PATIENT
  Sex: Male
  Weight: 109 kg

DRUGS (7)
  1. REBIF [Suspect]
     Dates: start: 20111231, end: 20120106
  2. TOPAMAX [Concomitant]
     Indication: HEADACHE
  3. REBIF [Suspect]
     Route: 058
     Dates: start: 20120106
  4. REBIF [Suspect]
     Indication: PRODUCT USED FOR UNKNOWN INDICATION
     Dates: start: 20111202, end: 20111231
  5. COUMADIN [Concomitant]
     Indication: THROMBOSIS
  6. LISINOPRIL [Concomitant]
     Indication: HYPERTENSION
  7. PRILOSEC [Concomitant]
     Indication: GASTROOESOPHAGEAL REFLUX DISEASE

REACTIONS (4)
  - GASTROINTESTINAL INFLAMMATION [None]
  - INFLUENZA LIKE ILLNESS [None]
  - ARTHRALGIA [None]
  - PALPITATIONS [None]
